FAERS Safety Report 9550209 (Version 5)
Quarter: 2013Q4

REPORT INFORMATION
  Report Type: Report from Study
  Country: DE (occurrence: DE)
  Receive Date: 20130924
  Receipt Date: 20131210
  Transmission Date: 20140711
  Serious: Yes (Hospitalization)
  Sender: FDA-Public Use
  Company Number: PHHY2013DE037317

PATIENT
  Sex: Female
  Weight: 72 kg

DRUGS (13)
  1. AFINITOR [Suspect]
     Indication: BREAST CANCER METASTATIC
     Dosage: 10 MG, DAILY
     Route: 048
     Dates: start: 20130320, end: 20130411
  2. AFINITOR [Suspect]
     Dosage: 10 MG, DAILY
     Route: 048
     Dates: start: 20130415, end: 20130429
  3. AFINITOR [Suspect]
     Dosage: 10 MG, DAILY
     Dates: start: 20130501, end: 20130518
  4. AFINITOR [Suspect]
     Dosage: 10 MG, DAILY
     Route: 048
     Dates: start: 20130520
  5. EXEMESTANE [Suspect]
     Indication: BREAST CANCER METASTATIC
     Dosage: 25 MG, DAILY
     Route: 048
     Dates: start: 20130320, end: 20130429
  6. EXEMESTANE [Suspect]
     Dosage: 25 MG, DAILY
     Dates: start: 20130501, end: 20130518
  7. EXEMESTANE [Suspect]
     Dosage: 25 MG, DAILY
     Dates: start: 20130520
  8. L-THYROXIN [Concomitant]
     Dosage: 50 MG, DAILY
     Dates: start: 20130320
  9. CALCIUM + VITAMIN D3 [Concomitant]
     Dosage: 600 MG, DAILY
     Dates: start: 20130319
  10. CLEXANE [Concomitant]
     Dosage: 40 MG, DAILY
     Dates: start: 20130301
  11. IBUPROFEN [Concomitant]
     Indication: GROIN PAIN
     Dosage: 600 MG, PRN
     Dates: start: 20130301
  12. PANTOPRAZOLE [Concomitant]
     Dosage: 20 MG, DAILY
     Dates: start: 20130301
  13. DENOSUMAB [Concomitant]
     Dosage: 120 MG, QD
     Dates: start: 20130301

REACTIONS (17)
  - Musculoskeletal chest pain [Recovered/Resolved]
  - Tumour thrombosis [Recovered/Resolved]
  - Metabolic disorder [Unknown]
  - Mucosal inflammation [Not Recovered/Not Resolved]
  - Tremor [Recovered/Resolved]
  - Hyperventilation [Recovered/Resolved]
  - Metastases to bone [Unknown]
  - Visual impairment [Not Recovered/Not Resolved]
  - Stomatitis [Not Recovered/Not Resolved]
  - Dyspnoea [Recovered/Resolved]
  - Nausea [Not Recovered/Not Resolved]
  - Malaise [Not Recovered/Not Resolved]
  - Groin pain [Not Recovered/Not Resolved]
  - Micturition urgency [Not Recovered/Not Resolved]
  - Vomiting [Not Recovered/Not Resolved]
  - Hot flush [Not Recovered/Not Resolved]
  - Malignant neoplasm progression [Unknown]
